FAERS Safety Report 6836556-9 (Version None)
Quarter: 2010Q3

REPORT INFORMATION
  Report Type: 
  Country: None (occurrence: None)
  Receive Date: 20100709
  Receipt Date: 20100622
  Transmission Date: 20110219
  Serious: Yes (Hospitalization)
  Sender: FDA-Public Use
  Company Number: AE 2010-125

PATIENT
  Age: 55 Year
  Sex: Male

DRUGS (9)
  1. FAZACLO ODT [Suspect]
     Indication: SCHIZOPHRENIA, PARANOID TYPE
     Dosage: 500 MG DAILY PO
     Route: 048
     Dates: start: 20100412, end: 20100516
  2. LAMICTAL [Concomitant]
  3. FLOVENT [Concomitant]
  4. COMBIVENT [Concomitant]
  5. OMEPRAZOLE [Concomitant]
  6. ASPIRIN [Concomitant]
  7. LIPITOR [Concomitant]
  8. DILTIAZEM [Concomitant]
  9. DUONEBS [Concomitant]

REACTIONS (7)
  - AGRANULOCYTOSIS [None]
  - CELLULITIS [None]
  - GROIN ABSCESS [None]
  - LYMPHADENITIS [None]
  - LYMPHOEDEMA [None]
  - NEUTROPENIA [None]
  - STREPTOCOCCUS TEST POSITIVE [None]
